FAERS Safety Report 9316471 (Version 1)
Quarter: 2013Q2

REPORT INFORMATION
  Report Type: Spontaneous
  Country: US (occurrence: None)
  Receive Date: 20130528
  Receipt Date: 20130528
  Transmission Date: 20140414
  Serious: Yes (Hospitalization)
  Sender: FDA-Public Use
  Company Number: None

PATIENT
  Age: 61 Year
  Sex: Male
  Weight: 77.3 kg

DRUGS (12)
  1. ERLOTINIB [Suspect]
     Indication: NON-SMALL CELL LUNG CANCER
     Route: 048
     Dates: start: 20130423
  2. MLN8237 [Suspect]
     Indication: NON-SMALL CELL LUNG CANCER
     Dosage: 1-7 Q21DAY
     Route: 048
     Dates: start: 20120423
  3. OXYCOTIN [Concomitant]
  4. OXYCODONE [Concomitant]
  5. ERTHYMYOIN OINTMENT [Concomitant]
  6. LUMIGAN [Concomitant]
  7. AZOPT [Concomitant]
  8. ALEVE [Concomitant]
  9. HYDROCORTISON [Concomitant]
  10. IMMODIUM [Concomitant]
  11. LYRICA [Concomitant]
  12. SENNAKOT [Concomitant]

REACTIONS (4)
  - Pyrexia [None]
  - Diarrhoea [None]
  - Tachycardia [None]
  - Neutrophil count decreased [None]
